FAERS Safety Report 7078581-1 (Version None)
Quarter: 2010Q4

REPORT INFORMATION
  Report Type: 
  Country: None (occurrence: None)
  Receive Date: 20101102
  Receipt Date: 20101027
  Transmission Date: 20110411
  Serious: Yes (Hospitalization, Disabling)
  Sender: FDA-Public Use
  Company Number: JP-SANOFI-AVENTIS-2010SA053186

PATIENT
  Age: 49 Year
  Sex: Male
  Weight: 48 kg

DRUGS (3)
  1. TAXOTERE [Suspect]
     Route: 042
     Dates: start: 20100712, end: 20100809
  2. DECADRON [Concomitant]
     Indication: PREMEDICATION
     Dates: start: 20100712, end: 20100809
  3. KYTRIL [Concomitant]
     Indication: PREMEDICATION

REACTIONS (2)
  - CEREBRAL INFARCTION [None]
  - PYREXIA [None]
